FAERS Safety Report 4571725-2 (Version None)
Quarter: 2005Q1

REPORT INFORMATION
  Report Type: 
  Country: None (occurrence: None)
  Receive Date: 20050202
  Receipt Date: 20050202
  Transmission Date: 20050727
  Serious: Yes (Life-Threatening)
  Sender: FDA-Public Use
  Company Number: None

PATIENT
  Sex: Male

DRUGS (4)
  1. INTEGRILIN [Suspect]
     Indication: MYOCARDIAL INFARCTION
     Dosage: ONCE    INTRAVENOU
     Route: 042
     Dates: start: 20030801, end: 20030802
  2. COUMADIN [Concomitant]
  3. PLAVIX [Concomitant]
  4. AMIODARONE [Concomitant]

REACTIONS (1)
  - THROMBOCYTOPENIA [None]
